FAERS Safety Report 9047044 (Version 1)
Quarter: 2013Q1

REPORT INFORMATION
  Report Type: Spontaneous
  Country: NO (occurrence: NO)
  Receive Date: 20130204
  Receipt Date: 20130204
  Transmission Date: 20140127
  Serious: Yes (Hospitalization)
  Sender: FDA-Public Use
  Company Number: NO-JNJFOC-20130111565

PATIENT
  Age: 3 None
  Sex: Female
  Weight: 13 kg

DRUGS (4)
  1. REMICADE [Suspect]
     Indication: UVEITIS
     Dosage: 2-3 ML FOR DOSE 4,AFTER INITIAL DOSAGE 0, 2 WEEKS, 4 WEEKS, 6 WEEKS APART
     Route: 042
     Dates: start: 20120822, end: 20121116
  2. REMICADE [Suspect]
     Indication: JUVENILE IDIOPATHIC ARTHRITIS
     Dosage: 2-3 ML FOR DOSE 4,AFTER INITIAL DOSAGE 0, 2 WEEKS, 4 WEEKS, 6 WEEKS APART
     Route: 042
     Dates: start: 20120822, end: 20121116
  3. FOLIC ACID [Concomitant]
     Route: 065
  4. METHOTREXATE [Concomitant]
     Route: 065

REACTIONS (8)
  - Anaphylactic reaction [Recovered/Resolved]
  - Infusion related reaction [Unknown]
  - Headache [Unknown]
  - Abdominal pain upper [Unknown]
  - Decreased appetite [Unknown]
  - Rash [Unknown]
  - Malaise [Unknown]
  - Discomfort [Unknown]
